FAERS Safety Report 21778686 (Version 1)
Quarter: 2022Q4

REPORT INFORMATION
  Report Type: Spontaneous
  Country: US (occurrence: US)
  Receive Date: 20221226
  Receipt Date: 20221226
  Transmission Date: 20230113
  Serious: No
  Sender: FDA-Public Use
  Company Number: US-MIGRATION_PFIZER-2022BHV003247

PATIENT
  Age: 15 Year
  Sex: Female

DRUGS (1)
  1. NURTEC ODT [Suspect]
     Active Substance: RIMEGEPANT SULFATE
     Indication: Product used for unknown indication
     Dosage: THEY WERE TAKING IT FOR 30 DAYS BUT WE DON^T KNOW HOW MANY TIMES A DAY
     Route: 065

REACTIONS (1)
  - Off label use [Not Recovered/Not Resolved]
